FAERS Safety Report 8108805-0 (Version None)
Quarter: 2012Q1

REPORT INFORMATION
  Report Type: 
  Country: None (occurrence: None)
  Receive Date: 20120202
  Receipt Date: 20120117
  Transmission Date: 20120608
  Serious: No
  Sender: FDA-Public Use
  Company Number: US-AMGEN-USASP2012003324

PATIENT
  Age: 44 Year
  Sex: Female

DRUGS (8)
  1. PLAQUENIL [Concomitant]
     Dosage: 1 MG, QD
  2. ASPIRIN [Concomitant]
     Dosage: 1 MG, QD
  3. HYDROCODONE/ACETAMINOPHEN          /00607101/ [Concomitant]
     Dosage: UNK
  4. METHOTREXATE [Concomitant]
     Dosage: 1 MG, QWK
  5. FOLIC ACID [Concomitant]
     Dosage: 1 MUG, QD
  6. IBUPROFEN [Concomitant]
     Dosage: 2 MG, QD
  7. SYNTHROID [Concomitant]
     Dosage: 1 MUG, QD
  8. ENBREL [Suspect]
     Indication: RHEUMATOID ARTHRITIS
     Dosage: 50 MG, QWK
     Dates: start: 20080501

REACTIONS (3)
  - HYPOTHYROIDISM [None]
  - HEPATIC ENZYME INCREASED [None]
  - BLOOD CHOLESTEROL INCREASED [None]
